FAERS Safety Report 6861435-0 (Version None)
Quarter: 2010Q3

REPORT INFORMATION
  Report Type: 
  Country: None (occurrence: None)
  Receive Date: 20100720
  Receipt Date: 20100714
  Transmission Date: 20110219
  Serious: Yes (Other)
  Sender: FDA-Public Use
  Company Number: US-AMGEN-QUU389170

PATIENT
  Sex: Female
  Weight: 168 kg

DRUGS (9)
  1. NPLATE [Suspect]
     Indication: IDIOPATHIC THROMBOCYTOPENIC PURPURA
     Route: 058
     Dates: start: 20090629, end: 20100318
  2. CORTICOSTEROIDS [Concomitant]
  3. IMMU-G [Concomitant]
     Dates: start: 20050105
  4. PROMACTA [Concomitant]
     Dates: start: 20090201, end: 20090601
  5. RITUXIMAB [Concomitant]
     Dates: start: 20031103, end: 20100311
  6. CYCLOPHOSPHAMIDE [Concomitant]
     Dates: end: 20090901
  7. VINCRISTINE [Concomitant]
     Dates: start: 20100107, end: 20100311
  8. DANAZOL [Concomitant]
  9. DECADRON [Concomitant]

REACTIONS (9)
  - ANAL HAEMORRHAGE [None]
  - B-CELL SMALL LYMPHOCYTIC LYMPHOMA [None]
  - CHRONIC LYMPHOCYTIC LEUKAEMIA [None]
  - EPISTAXIS [None]
  - INCREASED TENDENCY TO BRUISE [None]
  - MUCOSAL HAEMORRHAGE [None]
  - MYELOFIBROSIS [None]
  - THERAPEUTIC RESPONSE DECREASED [None]
  - VAGINAL HAEMORRHAGE [None]
